FAERS Safety Report 17774865 (Version 4)
Quarter: 2022Q2

REPORT INFORMATION
  Report Type: Report from Study
  Country: US (occurrence: US)
  Receive Date: 20200513
  Receipt Date: 20220613
  Transmission Date: 20220721
  Serious: No
  Sender: FDA-Public Use
  Company Number: US-ACADIA PHARMACEUTICALS INC.-ACA-2020-PIM-000200

PATIENT
  Age: 87 Year
  Sex: Female

DRUGS (8)
  1. NUPLAZID [Suspect]
     Active Substance: PIMAVANSERIN TARTRATE
     Indication: Parkinson^s disease
     Dosage: 10 MILLIGRAM, QD
     Route: 048
     Dates: start: 20190313, end: 2019
  2. NUPLAZID [Suspect]
     Active Substance: PIMAVANSERIN TARTRATE
     Dosage: 10 MILLIGRAM, QPM
     Route: 048
     Dates: start: 20190405
  3. ZANTAC [Concomitant]
     Active Substance: RANITIDINE HYDROCHLORIDE
     Dosage: 75 MG
  4. CARBIDOPA, LEVODOPA AND ENTACAPONE [Concomitant]
     Active Substance: CARBIDOPA\ENTACAPONE\LEVODOPA
  5. FAMOTIDINE [Concomitant]
     Active Substance: FAMOTIDINE
  6. NITROFURANTOIN [Concomitant]
     Active Substance: NITROFURANTOIN
  7. RASAGILINE [Concomitant]
     Active Substance: RASAGILINE
  8. TIMOLOL MALEATE [Concomitant]
     Active Substance: TIMOLOL MALEATE

REACTIONS (3)
  - Body temperature increased [Not Recovered/Not Resolved]
  - Body temperature increased [Not Recovered/Not Resolved]
  - Product dose omission issue [Unknown]

NARRATIVE: CASE EVENT DATE: 20220501
